FAERS Safety Report 5677493-5 (Version None)
Quarter: 2008Q1

REPORT INFORMATION
  Report Type: 
  Country: None (occurrence: None)
  Receive Date: 20080324
  Receipt Date: 20080313
  Transmission Date: 20080703
  Serious: Yes (Hospitalization, Other)
  Sender: FDA-Public Use
  Company Number: FR-PFIZER INC-2008025589

PATIENT
  Sex: Male

DRUGS (2)
  1. TAHOR [Suspect]
     Indication: DRUG USE FOR UNKNOWN INDICATION
  2. TAHOR [Suspect]
     Indication: CEREBROVASCULAR ACCIDENT

REACTIONS (5)
  - ARTHRALGIA [None]
  - BACK PAIN [None]
  - CEREBROVASCULAR ACCIDENT [None]
  - CONSTIPATION [None]
  - MUSCLE FATIGUE [None]
